FAERS Safety Report 25368949 (Version 2)
Quarter: 2025Q2

REPORT INFORMATION
  Report Type: Spontaneous
  Country: BR (occurrence: BR)
  Receive Date: 20250528
  Receipt Date: 20250612
  Transmission Date: 20250716
  Serious: Yes (Other)
  Sender: CURRAX PHARMACEUTICALS
  Company Number: BR-NALPROPION PHARMACEUTICALS INC.-BR-2025CUR001065

PATIENT
  Sex: Male

DRUGS (11)
  1. CONTRAVE [Suspect]
     Active Substance: BUPROPION HYDROCHLORIDE\NALTREXONE HYDROCHLORIDE
     Indication: Product used for unknown indication
     Dosage: 4.0 DOSAGE FORM (4 DOSAGE FORM, 1 IN 1 DAY)
     Route: 048
     Dates: start: 20230915, end: 20240701
  2. BISOPROLOL FUMARATE [Suspect]
     Active Substance: BISOPROLOL FUMARATE
     Indication: Product used for unknown indication
     Dosage: 1.0 DOSAGE FORM (1 DOSAGE FORM, 1 IN 1 DAY), 1 TABLET AT BEDTIME
     Route: 065
  3. INSPRA [Concomitant]
     Active Substance: EPLERENONE
     Indication: Product used for unknown indication
     Dosage: (25 MILLIGRAM(S), 1 IN 1 DAY) 1 TABLET A DAY
  4. DAPAGLIFLOZIN [Concomitant]
     Active Substance: DAPAGLIFLOZIN
     Indication: Product used for unknown indication
     Dosage: (10 MILLIGRAM(S), 1 IN 1 DAY) 1 TABLET AFTER BREAKFAST
  5. CHOLECALCIFEROL [Concomitant]
     Active Substance: CHOLECALCIFEROL
     Indication: Product used for unknown indication
     Dosage: (1 DOSAGE FORM, 1 IN 1 WEEK), 50,000U 1 TABLET PER WEEK
  6. ELIQUIS [Concomitant]
     Active Substance: APIXABAN
     Indication: Product used for unknown indication
     Dosage: 10.0 MILLIGRAM(S) (5 MILLIGRAM(S), 1 IN 12 HOUR) 1 TABLET ONCE EVERY 12 HOURS
  7. CYANOCOBALAMIN\PYRIDOXINE HYDROCHLORIDE\THIAMINE [Concomitant]
     Active Substance: CYANOCOBALAMIN\PYRIDOXINE HYDROCHLORIDE\THIAMINE
     Indication: Product used for unknown indication
     Dosage: (1 DOSAGE FORM, 1 IN 1 WEEK), 50,000U 1 TABLET PER WEEK
  8. LASIX [Concomitant]
     Active Substance: FUROSEMIDE
     Indication: Product used for unknown indication
     Dosage: 40.0 MILLIGRAM(S) (40 MILLIGRAM(S), 1 IN 1 DAY) 1 TABLET PER DAY
  9. BASAGLAR [Concomitant]
     Active Substance: INSULIN GLARGINE
     Indication: Product used for unknown indication
     Route: 058
  10. ENTRESTO [Concomitant]
     Active Substance: SACUBITRIL\VALSARTAN
     Indication: Product used for unknown indication
     Dosage: ENTRESTO 200 1 TABLET AFTER BREAKFAST AND 1 TABLET AT NIGHT, (2.0 DOSAGE FORM (1 DOSAGE FORM, 2 IN 1
  11. ZETIA [Concomitant]
     Active Substance: EZETIMIBE
     Indication: Product used for unknown indication
     Dosage: 10.0 MILLIGRAM(S) (10 MILLIGRAM(S), (1 IN 1 DAY) 1 TABLET 1 AT NIGHT

REACTIONS (3)
  - Hallucination, visual [Unknown]
  - Insomnia [Unknown]
  - Constipation [Unknown]
